FAERS Safety Report 7341533-8 (Version None)
Quarter: 2011Q1

REPORT INFORMATION
  Report Type: 
  Country: None (occurrence: None)
  Receive Date: 20110309
  Receipt Date: 20110303
  Transmission Date: 20110831
  Serious: Yes (Other)
  Sender: FDA-Public Use
  Company Number: US-PFIZER INC-2011047146

PATIENT
  Sex: Female
  Weight: 67.574 kg

DRUGS (8)
  1. PREMARIN [Suspect]
     Dosage: 1 MG, 3X/WEEK
     Route: 067
  2. SERTRALINE HYDROCHLORIDE [Concomitant]
     Indication: STRESS
     Dosage: 25 MG, 1X/DAY
     Route: 048
  3. FLUTICASONE PROPIONATE [Concomitant]
     Indication: HYPERSENSITIVITY
     Dosage: 50 UG, 1X/DAY
     Route: 045
  4. VITAMIN E [Concomitant]
     Dosage: 400 IU, 1X/DAY
     Route: 048
  5. ADVAIR DISKUS 100/50 [Concomitant]
     Indication: LUNG NEOPLASM MALIGNANT
     Dosage: 250/50
  6. PRAVACHOL [Concomitant]
     Indication: BLOOD CHOLESTEROL ABNORMAL
     Dosage: 20 MG, 1X/DAY
     Route: 048
  7. LISINOPRIL [Concomitant]
     Indication: BLOOD PRESSURE ABNORMAL
     Dosage: 20 MG, 1X/DAY
     Route: 048
  8. ACETYLSALICYLIC ACID [Concomitant]
     Dosage: 81 MG, EVERY OTHER DAY
     Route: 048

REACTIONS (1)
  - BLADDER DISORDER [None]
